FAERS Safety Report 13234213 (Version 2)
Quarter: 2017Q1

REPORT INFORMATION
  Report Type: Spontaneous
  Country: IQ (occurrence: IQ)
  Receive Date: 20170215
  Receipt Date: 20170307
  Transmission Date: 20170428
  Serious: Yes (Death, Other)
  Sender: FDA-Public Use
  Company Number: PHHY2017IQ004575

PATIENT
  Age: 63 Year
  Sex: Male
  Weight: 90 kg

DRUGS (1)
  1. AFINITOR [Suspect]
     Active Substance: EVEROLIMUS
     Indication: RENAL CELL CARCINOMA
     Dosage: 10 MG, UNK
     Route: 048
     Dates: start: 20161110, end: 20170108

REACTIONS (19)
  - Cyanosis [Fatal]
  - Dyspnoea [Fatal]
  - Hyperhidrosis [Fatal]
  - Pneumonitis [Fatal]
  - Fatigue [Fatal]
  - Deep vein thrombosis [Unknown]
  - Wheezing [Fatal]
  - Abasia [Fatal]
  - Chest pain [Fatal]
  - Chest discomfort [Fatal]
  - Pulmonary mass [Not Recovered/Not Resolved]
  - Respiratory failure [Fatal]
  - Tachypnoea [Fatal]
  - Palpitations [Fatal]
  - Confusional state [Fatal]
  - Productive cough [Fatal]
  - Malaise [Fatal]
  - Arthralgia [Unknown]
  - Crepitations [Fatal]

NARRATIVE: CASE EVENT DATE: 20170212
